FAERS Safety Report 20876101 (Version 1)
Quarter: 2022Q2

REPORT INFORMATION
  Report Type: Spontaneous
  Country: US (occurrence: US)
  Receive Date: 20220526
  Receipt Date: 20220526
  Transmission Date: 20220720
  Serious: No
  Sender: FDA-Public Use
  Company Number: US-NOVEN PHARMACEUTICALS, INC.-2021-NOV-US003500

PATIENT
  Age: 8 Year
  Sex: Female
  Weight: 31.746 kg

DRUGS (2)
  1. DAYTRANA [Suspect]
     Active Substance: METHYLPHENIDATE
     Indication: Attention deficit hyperactivity disorder
     Dosage: 15 MG/9HRS, UNK
     Route: 062
     Dates: start: 20210602
  2. DAYTRANA [Suspect]
     Active Substance: METHYLPHENIDATE
     Dosage: 15 MG/9HRS, UNK
     Route: 062
     Dates: start: 2020, end: 20210601

REACTIONS (3)
  - Psychomotor hyperactivity [Not Recovered/Not Resolved]
  - Aggression [Not Recovered/Not Resolved]
  - Device effect variable [Not Recovered/Not Resolved]

NARRATIVE: CASE EVENT DATE: 20210601
